FAERS Safety Report 14348495 (Version 2)
Quarter: 2018Q1

REPORT INFORMATION
  Report Type: Spontaneous
  Country: US (occurrence: US)
  Receive Date: 20180103
  Receipt Date: 20180105
  Transmission Date: 20180509
  Serious: Yes (Death, Other)
  Sender: FDA-Public Use
  Company Number: US-009507513-1801USA000497

PATIENT
  Age: 55 Year
  Sex: Female

DRUGS (16)
  1. METFORMIN [Suspect]
     Active Substance: METFORMIN HYDROCHLORIDE
  2. FUROSEMIDE. [Suspect]
     Active Substance: FUROSEMIDE
  3. RISPERIDONE. [Suspect]
     Active Substance: RISPERIDONE
  4. ACETAMINOPHEN (+) OXYCODONE HYDROCHLORIDE [Suspect]
     Active Substance: ACETAMINOPHEN\OXYCODONE HYDROCHLORIDE
  5. PAROXETINE. [Suspect]
     Active Substance: PAROXETINE
  6. CYCLOBENZAPRINE HYDROCHLORIDE. [Suspect]
     Active Substance: CYCLOBENZAPRINE HYDROCHLORIDE
  7. BUPROPION HYDROCHLORIDE. [Suspect]
     Active Substance: BUPROPION HYDROCHLORIDE
  8. LEVOTHYROXINE SODIUM. [Suspect]
     Active Substance: LEVOTHYROXINE SODIUM
     Route: 048
  9. LAMOTRIGINE. [Suspect]
     Active Substance: LAMOTRIGINE
  10. RIVAROXABAN [Suspect]
     Active Substance: RIVAROXABAN
  11. EZETIMIBE. [Suspect]
     Active Substance: EZETIMIBE
     Route: 048
  12. MIRTAZAPINE. [Suspect]
     Active Substance: MIRTAZAPINE
     Route: 048
  13. TRAMADOL HYDROCHLORIDE. [Suspect]
     Active Substance: TRAMADOL HYDROCHLORIDE
  14. TRAZODONE HYDROCHLORIDE. [Suspect]
     Active Substance: TRAZODONE HYDROCHLORIDE
     Route: 048
  15. INSULIN GLARGINE BIOSIMILAR [Suspect]
     Active Substance: INSULIN GLARGINE
     Route: 051
  16. DIAZEPAM. [Suspect]
     Active Substance: DIAZEPAM

REACTIONS (1)
  - Death [Fatal]
